FAERS Safety Report 9507121 (Version 1)
Quarter: 2013Q3

REPORT INFORMATION
  Report Type: Spontaneous
  Country: CA (occurrence: None)
  Receive Date: 20130904
  Receipt Date: 20130904
  Transmission Date: 20140515
  Serious: Yes (Other)
  Sender: FDA-Public Use
  Company Number: 2013AP007549

PATIENT
  Sex: 0

DRUGS (1)
  1. APO-RANITIDINE [Suspect]

REACTIONS (2)
  - Coeliac disease [None]
  - Condition aggravated [None]
